FAERS Safety Report 7070995-9 (Version None)
Quarter: 2010Q4

REPORT INFORMATION
  Report Type: 
  Country: None (occurrence: None)
  Receive Date: 20101029
  Receipt Date: 20101026
  Transmission Date: 20110411
  Serious: Yes (Death, Other)
  Sender: FDA-Public Use
  Company Number: US-BRISTOL-MYERS SQUIBB COMPANY-15354004

PATIENT
  Age: 78 Year
  Sex: Female

DRUGS (2)
  1. COUMADIN [Suspect]
     Indication: PULMONARY EMBOLISM
     Route: 065
  2. LOVENOX [Suspect]
     Indication: PULMONARY EMBOLISM
     Dosage: PARENTERAL, INJECTION, STRENGTH: 100MG/ML, 1DF= 1MG/KG BODY WEIGHT.
     Route: 058

REACTIONS (2)
  - RETROPERITONEAL HAEMORRHAGE [None]
  - THROMBOCYTOPENIA [None]
